FAERS Safety Report 12217779 (Version 1)
Quarter: 2016Q1

REPORT INFORMATION
  Report Type: Spontaneous
  Country: FR (occurrence: FR)
  Receive Date: 20160329
  Receipt Date: 20160329
  Transmission Date: 20160526
  Serious: Yes (Hospitalization)
  Sender: FDA-Public Use
  Company Number: FR-ROCHE-1732209

PATIENT
  Age: 48 Year
  Sex: Female

DRUGS (4)
  1. ZOPHREN [Concomitant]
     Active Substance: ONDANSETRON
     Indication: PREMEDICATION
  2. LEVEMIR [Concomitant]
     Active Substance: INSULIN DETEMIR
     Route: 058
  3. TAXOTERE [Suspect]
     Active Substance: DOCETAXEL
     Indication: INVASIVE DUCTAL BREAST CARCINOMA
     Route: 065
     Dates: start: 20151117, end: 20151117
  4. HERCEPTIN [Suspect]
     Active Substance: TRASTUZUMAB
     Indication: INVASIVE DUCTAL BREAST CARCINOMA
     Route: 042
     Dates: start: 20151117

REACTIONS (5)
  - Oesophagitis [Recovered/Resolved]
  - Malaise [Recovered/Resolved]
  - Abdominal pain upper [Recovered/Resolved]
  - Asthenia [Recovered/Resolved]
  - Nausea [Recovered/Resolved]

NARRATIVE: CASE EVENT DATE: 20151117
